FAERS Safety Report 4598555-X (Version None)
Quarter: 2005Q1

REPORT INFORMATION
  Report Type: 
  Country: None (occurrence: None)
  Receive Date: 20050304
  Receipt Date: 20050216
  Transmission Date: 20050727
  Serious: Yes (Hospitalization)
  Sender: FDA-Public Use
  Company Number: CA-ROCHE-395820

PATIENT
  Age: 31 Year
  Sex: Male
  Weight: 92.5 kg

DRUGS (4)
  1. PEG-INTERFERON ALFA 2A (RO 25-8310) [Suspect]
     Dosage: DATE OF LAST DOSE PRIOR TO SAE WAS 09 FEB 2005.
     Route: 058
     Dates: start: 20040414, end: 20050215
  2. RIBAVIRIN [Suspect]
     Dosage: DOSAGE FORM REPORTED AS PILLS.  PATIENT RECEIVED A DIVIDED DOSE 2X A DAY.
     Route: 048
     Dates: start: 20040414, end: 20050215
  3. CELEXA [Concomitant]
     Indication: DEPRESSION
     Route: 048
     Dates: start: 20040610, end: 20050215
  4. ATARAX [Concomitant]
     Dosage: ON AN AS NEEDED BASIS (PRN)
     Route: 048
     Dates: start: 20040913, end: 20050215

REACTIONS (2)
  - PARANOIA [None]
  - PSYCHOTIC DISORDER [None]
